FAERS Safety Report 7048283-6 (Version None)
Quarter: 2010Q4

REPORT INFORMATION
  Report Type: 
  Country: None (occurrence: None)
  Receive Date: 20101015
  Receipt Date: 20101007
  Transmission Date: 20110411
  Serious: Yes (Other)
  Sender: FDA-Public Use
  Company Number: BR-PFIZER INC-2010127626

PATIENT
  Age: 60 Year
  Sex: Female
  Weight: 80 kg

DRUGS (5)
  1. LIPITOR [Suspect]
     Indication: BLOOD CHOLESTEROL INCREASED
     Dosage: 40 MG, 1X/DAY, 1 TABLET
     Route: 048
     Dates: start: 20091201
  2. OMEPRAZOLE [Concomitant]
     Indication: REFLUX OESOPHAGITIS
     Dosage: UNK
     Dates: end: 20100801
  3. OLMESARTAN MEDOXOMIL AND HYDROCHLOROTHIZIDE [Concomitant]
     Indication: HYPERTENSION
     Dosage: UNK
     Dates: start: 20090801
  4. NEXIUM [Concomitant]
     Indication: REFLUX OESOPHAGITIS
     Dosage: UNK
     Dates: start: 20100801
  5. CALCIUM CARBONATE [Concomitant]
     Indication: OSTEOPENIA
     Dosage: UNK

REACTIONS (5)
  - DYSPEPSIA [None]
  - INCREASED APPETITE [None]
  - MEDICATION RESIDUE [None]
  - PRODUCT SOLUBILITY ABNORMAL [None]
  - WEIGHT INCREASED [None]
